FAERS Safety Report 17460218 (Version 1)
Quarter: 2020Q1

REPORT INFORMATION
  Report Type: Spontaneous
  Country: US (occurrence: US)
  Receive Date: 20200226
  Receipt Date: 20200226
  Transmission Date: 20200409
  Serious: No
  Sender: FDA-Public Use
  Company Number: US-ASTRAZENECA-2020SE14190

PATIENT
  Age: 49 Year
  Sex: Female
  Weight: 84.4 kg

DRUGS (5)
  1. BEVESPI AEROSPHERE [Suspect]
     Active Substance: FORMOTEROL FUMARATE\GLYCOPYRROLATE
     Indication: DYSPNOEA
     Dosage: RESTARTED
     Route: 055
     Dates: start: 201905
  2. ALBUTEROL HFA [Concomitant]
     Active Substance: ALBUTEROL SULFATE
     Indication: PROPHYLAXIS
     Dosage: 90.0UG AS REQUIRED
     Route: 055
     Dates: start: 20190927
  3. BEVESPI AEROSPHERE [Suspect]
     Active Substance: FORMOTEROL FUMARATE\GLYCOPYRROLATE
     Indication: DYSPNOEA
     Dosage: 9/4.8MCG, 2 PUFFS TWO TIMES A DAY
     Route: 055
     Dates: start: 2017, end: 2018
  4. BEVESPI AEROSPHERE [Suspect]
     Active Substance: FORMOTEROL FUMARATE\GLYCOPYRROLATE
     Indication: DYSPNOEA
     Dosage: 9/4.8MCG, 2 PUFFS TWO TIMES A DAY
     Route: 055
     Dates: start: 2017, end: 2018
  5. BEVESPI AEROSPHERE [Suspect]
     Active Substance: FORMOTEROL FUMARATE\GLYCOPYRROLATE
     Indication: DYSPNOEA
     Dosage: RESTARTED
     Route: 055
     Dates: start: 201905

REACTIONS (3)
  - Dyspnoea [Not Recovered/Not Resolved]
  - Insurance issue [Recovered/Resolved]
  - Wrong technique in product usage process [Unknown]

NARRATIVE: CASE EVENT DATE: 2017
